FAERS Safety Report 14758118 (Version 1)
Quarter: 2018Q2

REPORT INFORMATION
  Report Type: Spontaneous
  Country: US (occurrence: US)
  Receive Date: 20180413
  Receipt Date: 20180413
  Transmission Date: 20180711
  Serious: No
  Sender: FDA-Public Use
  Company Number: US-009507513-1804USA001834

PATIENT
  Age: 19 Year
  Sex: Female
  Weight: 96.15 kg

DRUGS (4)
  1. NUVARING [Suspect]
     Active Substance: ETHINYL ESTRADIOL\ETONOGESTREL
     Indication: CONTRACEPTION
     Dosage: FOUR WEEKS AND THEN TAKES A RING FREE BREAK
     Route: 067
     Dates: start: 20180208
  2. PYRIDOSTIGMINE BROMIDE. [Concomitant]
     Active Substance: PYRIDOSTIGMINE BROMIDE
  3. MELATONIN [Concomitant]
     Active Substance: MELATONIN
  4. PYRIDOSTIGMINE BROMIDE. [Concomitant]
     Active Substance: PYRIDOSTIGMINE BROMIDE

REACTIONS (4)
  - Muscle spasms [Unknown]
  - Metrorrhagia [Not Recovered/Not Resolved]
  - Pain in extremity [Unknown]
  - Incorrect drug administration duration [Unknown]

NARRATIVE: CASE EVENT DATE: 20180402
